FAERS Safety Report 14839024 (Version 1)
Quarter: 2018Q2

REPORT INFORMATION
  Report Type: Spontaneous
  Country: FR (occurrence: FR)
  Receive Date: 20180502
  Receipt Date: 20180502
  Transmission Date: 20180711
  Serious: Yes (Hospitalization)
  Sender: FDA-Public Use
  Company Number: FR-PFIZER INC-2018175253

PATIENT
  Age: 78 Year
  Sex: Male
  Weight: 61.1 kg

DRUGS (5)
  1. METHYLPREDNISOLONE SODIUM SUCCINATE. [Suspect]
     Active Substance: METHYLPREDNISOLONE SODIUM SUCCINATE
     Indication: ADENOCARCINOMA OF COLON
     Dosage: 40 MG, CYCLIC
     Route: 042
     Dates: start: 20180223, end: 20180223
  2. FLUOROURACIL. [Suspect]
     Active Substance: FLUOROURACIL
     Indication: ADENOCARCINOMA OF COLON
     Dosage: 690 MG, CYCLIC
     Route: 042
     Dates: start: 20180223, end: 20180223
  3. IRINOTECAN HCL [Suspect]
     Active Substance: IRINOTECAN HYDROCHLORIDE
     Indication: ADENOCARCINOMA OF COLON
     Dosage: 234 MG, CYCLIC
     Route: 042
     Dates: start: 20180223, end: 20180223
  4. AFLIBERCEPT [Suspect]
     Active Substance: AFLIBERCEPT
     Indication: ADENOCARCINOMA OF COLON
     Dosage: 256 MG, CYCLIC
     Route: 042
     Dates: start: 20180223, end: 20180223
  5. LEVOFOLINATE CALCIUM [Suspect]
     Active Substance: LEVOLEUCOVORIN CALCIUM
     Indication: ADENOCARCINOMA OF COLON
     Dosage: 346 MG, CYCLIC
     Route: 042
     Dates: start: 20180223, end: 20180223

REACTIONS (3)
  - Lymphopenia [Recovering/Resolving]
  - Septic shock [Recovered/Resolved]
  - Thrombocytopenia [Recovered/Resolved]

NARRATIVE: CASE EVENT DATE: 20180227
